FAERS Safety Report 25722164 (Version 1)
Quarter: 2025Q3

REPORT INFORMATION
  Report Type: Spontaneous
  Country: US (occurrence: US)
  Receive Date: 20250825
  Receipt Date: 20250825
  Transmission Date: 20251021
  Serious: No
  Sender: BAYER HEALTHCARE PHARMACEUTICALS INC.
  Company Number: US-BAYER-2025A111496

PATIENT
  Age: 47 Year
  Sex: Female

DRUGS (1)
  1. NATAZIA [Suspect]
     Active Substance: DIENOGEST\ESTRADIOL VALERATE
     Route: 048

REACTIONS (3)
  - Depressed mood [None]
  - Mood swings [None]
  - Stress [Not Recovered/Not Resolved]

NARRATIVE: CASE EVENT DATE: 20250821
